FAERS Safety Report 8790306 (Version 3)
Quarter: 2012Q4

REPORT INFORMATION
  Report Type: 
  Country: JP (occurrence: JP)
  Receive Date: 20120914
  Receipt Date: 20121210
  Transmission Date: 20130627
  Serious: Yes (Other)
  Sender: FDA-Public Use
  Company Number: JP-MPIJNJ-2012-06271

PATIENT

DRUGS (2)
  1. VELCADE [Suspect]
     Indication: MULTIPLE MYELOMA
     Dosage: 1.3 UNK, UNK
     Route: 042
     Dates: start: 20120806, end: 20120817
  2. DEXAMETHASONE [Concomitant]
     Indication: MULTIPLE MYELOMA
     Dosage: 20 mg, UNK
     Route: 042
     Dates: start: 20120806, end: 20120816

REACTIONS (1)
  - Posterior reversible encephalopathy syndrome [Recovered/Resolved]
